FAERS Safety Report 5052244-6 (Version None)
Quarter: 2006Q3

REPORT INFORMATION
  Report Type: 
  Country: None (occurrence: None)
  Receive Date: 20060717
  Receipt Date: 20060710
  Transmission Date: 20061208
  Serious: Yes (Hospitalization)
  Sender: FDA-Public Use
  Company Number: PHRM2006FR02012

PATIENT
  Age: 6 Year
  Sex: Male

DRUGS (1)
  1. ZADITEN [Suspect]
     Dosage: UNK, UNK
     Route: 048
     Dates: start: 20060606, end: 20060606

REACTIONS (1)
  - NIGHTMARE [None]
